FAERS Safety Report 7826825-8 (Version None)
Quarter: 2011Q3

REPORT INFORMATION
  Report Type: 
  Country: None (occurrence: None)
  Receive Date: 20110901
  Receipt Date: 20110523
  Transmission Date: 20111222
  Serious: Yes (Life-Threatening, Disabling, Other)
  Sender: FDA-Public Use
  Company Number: 267267USA

PATIENT
  Age: 59 Year
  Sex: Female
  Weight: 90.7194 kg

DRUGS (5)
  1. MULTI-VITAMIN [Concomitant]
  2. METOCLOPRAMIDE [Suspect]
     Indication: GASTROOESOPHAGEAL REFLUX DISEASE
  3. METOCLOPRAMIDE [Suspect]
     Indication: GASTROOESOPHAGEAL REFLUX DISEASE
  4. FISH OIL [Concomitant]
  5. PREDNISONE [Concomitant]

REACTIONS (6)
  - DRY EYE [None]
  - TARDIVE DYSKINESIA [None]
  - BLEPHAROSPASM [None]
  - PHOTOPHOBIA [None]
  - EXTRAPYRAMIDAL DISORDER [None]
  - DYSKINESIA [None]
